FAERS Safety Report 5641722-4 (Version None)
Quarter: 2008Q1

REPORT INFORMATION
  Report Type: 
  Country: None (occurrence: None)
  Receive Date: 20080131
  Receipt Date: 20071018
  Transmission Date: 20080703
  Serious: No
  Sender: FDA-Public Use
  Company Number: PHEH2007US13863

PATIENT
  Sex: Female

DRUGS (1)
  1. TEKTURNA [Suspect]

REACTIONS (5)
  - ARTHRALGIA [None]
  - DYSPHONIA [None]
  - FIBROMYALGIA [None]
  - MYALGIA [None]
  - RASH [None]
